FAERS Safety Report 9510544 (Version 2)
Quarter: 2013Q4

REPORT INFORMATION
  Report Type: Report from Study
  Country: US (occurrence: US)
  Receive Date: 20130909
  Receipt Date: 20131017
  Transmission Date: 20140711
  Serious: Yes (Hospitalization, Other)
  Sender: FDA-Public Use
  Company Number: PHEH2013US018817

PATIENT
  Age: 75 Year
  Sex: Male
  Weight: 70.75 kg

DRUGS (1)
  1. TOBI [Suspect]
     Indication: BRONCHITIS CHRONIC
     Dosage: 300 MG, BID (EVERY12 HRS FOR 28 DAYS)
     Dates: start: 20130423

REACTIONS (5)
  - Cardiac failure congestive [Unknown]
  - Pulmonary oedema [Recovering/Resolving]
  - Pulmonary congestion [Recovering/Resolving]
  - Sinus congestion [Recovering/Resolving]
  - Fibrosis [Unknown]
